FAERS Safety Report 16683320 (Version 1)
Quarter: 2019Q3

REPORT INFORMATION
  Report Type: Spontaneous
  Country: US (occurrence: US)
  Receive Date: 20190807
  Receipt Date: 20190807
  Transmission Date: 20191004
  Serious: Yes (Death, Hospitalization)
  Sender: FDA-Public Use
  Company Number: None

PATIENT
  Age: 55 Year
  Sex: Male
  Weight: 85.5 kg

DRUGS (10)
  1. KEYTRUDA [Suspect]
     Active Substance: PEMBROLIZUMAB
     Indication: PROPHYLACTIC CHEMOTHERAPY
     Route: 042
     Dates: start: 20190718, end: 20190718
  2. PROTONIX [Concomitant]
     Active Substance: PANTOPRAZOLE SODIUM
  3. STATIN [Concomitant]
     Active Substance: UNSPECIFIED INGREDIENT
  4. ELIQUIS [Concomitant]
     Active Substance: APIXABAN
  5. MORPHINE [Concomitant]
     Active Substance: MORPHINE
  6. PREDNISONE. [Concomitant]
     Active Substance: PREDNISONE
  7. RESTORING [Concomitant]
  8. GABAPENTINE [Concomitant]
     Active Substance: GABAPENTIN
  9. OXYCODONE [Concomitant]
     Active Substance: OXYCODONE
  10. LOSARTAN. [Concomitant]
     Active Substance: LOSARTAN

REACTIONS (5)
  - Pulmonary haemorrhage [None]
  - Cardiac arrest [None]
  - Cough [None]
  - Pain [None]
  - Gastrointestinal haemorrhage [None]

NARRATIVE: CASE EVENT DATE: 20190720
